FAERS Safety Report 6985593-2 (Version None)
Quarter: 2010Q3

REPORT INFORMATION
  Report Type: 
  Country: None (occurrence: None)
  Receive Date: 20100915
  Receipt Date: 20100806
  Transmission Date: 20110219
  Serious: No
  Sender: FDA-Public Use
  Company Number: A0875030A

PATIENT
  Age: 49 Year
  Sex: Female

DRUGS (1)
  1. NICORETTE MINI LOZENGE [Suspect]
     Indication: SMOKING CESSATION THERAPY
     Route: 002
     Dates: start: 20100713, end: 20100713

REACTIONS (2)
  - DYSPNOEA [None]
  - THROAT TIGHTNESS [None]
